FAERS Safety Report 4666993-2 (Version None)
Quarter: 2005Q2

REPORT INFORMATION
  Report Type: 
  Country: None (occurrence: None)
  Receive Date: 20050518
  Receipt Date: 20040809
  Transmission Date: 20051028
  Serious: Yes (Other)
  Sender: FDA-Public Use
  Company Number: PHEH2004US08646

PATIENT
  Age: 40 Year
  Sex: Female

DRUGS (5)
  1. TEGRETOL-XR [Suspect]
     Indication: EPILEPSY
     Dosage: ORAL
     Route: 048
  2. CLOZARIL [Suspect]
     Indication: PSYCHOTIC DISORDER
     Dosage: 25 MG, QD, ORAL
     Route: 048
     Dates: start: 20040727, end: 20040802
  3. ABILIFY [Concomitant]
  4. ZYPREXA [Concomitant]
  5. KEPPRA [Concomitant]

REACTIONS (3)
  - GRAND MAL CONVULSION [None]
  - LEUKOPENIA [None]
  - NEUTROPENIA [None]
